FAERS Safety Report 6676497-3 (Version None)
Quarter: 2010Q2

REPORT INFORMATION
  Report Type: 
  Country: None (occurrence: None)
  Receive Date: 20100412
  Receipt Date: 20100409
  Transmission Date: 20101027
  Serious: Yes (Hospitalization)
  Sender: FDA-Public Use
  Company Number: PHHO2009BE12267

PATIENT
  Sex: Male

DRUGS (2)
  1. AFINITOR [Suspect]
     Indication: METASTATIC RENAL CELL CARCINOMA
     Dosage: 10 MG
     Route: 048
     Dates: start: 20090617, end: 20091003
  2. AFINITOR [Suspect]
     Dosage: 10 MG
     Route: 048
     Dates: start: 20091018

REACTIONS (4)
  - GLOSSITIS [None]
  - GLOSSODYNIA [None]
  - STRIDOR [None]
  - SWOLLEN TONGUE [None]
